FAERS Safety Report 12735653 (Version 1)
Quarter: 2016Q3

REPORT INFORMATION
  Report Type: Spontaneous
  Country: IT (occurrence: IT)
  Receive Date: 20160912
  Receipt Date: 20160912
  Transmission Date: 20161109
  Serious: Yes (Hospitalization)
  Sender: FDA-Public Use
  Company Number: IT-OTSUKA-2016_021756

PATIENT
  Age: 37 Year
  Sex: Male
  Weight: 95 kg

DRUGS (1)
  1. ABILIFY MAINTENA [Suspect]
     Active Substance: ARIPIPRAZOLE
     Indication: PSYCHOTIC DISORDER
     Dosage: 400 MG, MONTHLY
     Route: 030
     Dates: start: 20160716, end: 20160716

REACTIONS (8)
  - Delirium [Recovered/Resolved]
  - Off label use [Unknown]
  - Delusion [Recovering/Resolving]
  - Hypertension [Recovering/Resolving]
  - Hyperpyrexia [Recovered/Resolved]
  - Catatonia [Recovering/Resolving]
  - Agitation [Recovering/Resolving]
  - Hyperglycaemia [Recovering/Resolving]

NARRATIVE: CASE EVENT DATE: 20160716
